FAERS Safety Report 5895234-3 (Version None)
Quarter: 2008Q3

REPORT INFORMATION
  Report Type: 
  Country: None (occurrence: None)
  Receive Date: 20080924
  Receipt Date: 20080917
  Transmission Date: 20090109
  Serious: Yes (Death, Hospitalization)
  Sender: FDA-Public Use
  Company Number: A0748914A

PATIENT
  Age: 75 Year
  Sex: Male
  Weight: 19.1 kg

DRUGS (3)
  1. SERETIDE [Suspect]
     Route: 055
     Dates: start: 20040101, end: 20080515
  2. SPIRIVA [Concomitant]
     Dates: start: 20070101, end: 20080512
  3. RITMONORM [Concomitant]
     Dates: start: 20030101, end: 20080512

REACTIONS (1)
  - PNEUMONIA BACTERIAL [None]
